FAERS Safety Report 5969226-X (Version None)
Quarter: 2008Q4

REPORT INFORMATION
  Report Type: 
  Country: None (occurrence: None)
  Receive Date: 20081126
  Receipt Date: 20080820
  Transmission Date: 20090506
  Serious: No
  Sender: FDA-Public Use
  Company Number: US-ABBOTT-08P-163-0471890-00

PATIENT
  Sex: Female

DRUGS (5)
  1. SIMCOR [Suspect]
     Indication: BLOOD CHOLESTEROL INCREASED
     Dosage: 500-20 DAILY AT NIGHT
     Dates: start: 20080731
  2. HCZT [Concomitant]
     Indication: BLOOD PRESSURE
  3. MVT COMPLEX [Concomitant]
     Indication: DRUG USE FOR UNKNOWN INDICATION
  4. HERBAL MOOD AGENT [Concomitant]
     Indication: DRUG USE FOR UNKNOWN INDICATION
  5. SUPER B COMPLEX [Concomitant]
     Indication: DRUG USE FOR UNKNOWN INDICATION

REACTIONS (6)
  - ABDOMINAL PAIN UPPER [None]
  - ARTHRALGIA [None]
  - ASTHENIA [None]
  - DYSPNOEA [None]
  - FATIGUE [None]
  - JOINT CREPITATION [None]
